FAERS Safety Report 5564325-9 (Version None)
Quarter: 2007Q4

REPORT INFORMATION
  Report Type: 
  Country: None (occurrence: None)
  Receive Date: 20071218
  Receipt Date: 20071210
  Transmission Date: 20080405
  Serious: Yes (Other)
  Sender: FDA-Public Use
  Company Number: PHEH2006US11230

PATIENT
  Age: 41 Year
  Sex: Male
  Weight: 66.666 kg

DRUGS (7)
  1. AREDIA [Suspect]
     Indication: METASTASES TO BONE
     Dosage: 90 MG MONTHLY
     Dates: start: 20030204, end: 20031118
  2. ZOMETA [Suspect]
     Indication: METASTASES TO BONE
     Dosage: MONTHLY
     Dates: start: 20031209, end: 20041001
  3. ZOMETA [Suspect]
     Dosage: 4 MG MONTHLY
     Dates: start: 20050601, end: 20050803
  4. ZOMETA [Suspect]
     Dosage: UNK, UNK
     Dates: start: 20020101, end: 20030201
  5. ZOMETA [Suspect]
     Dosage: EVERY TWO MONTHS
     Dates: start: 20050803, end: 20060406
  6. CELEBREX [Concomitant]
     Dosage: 200 MG, BID
  7. PREDNISONE [Concomitant]
     Dosage: 60 MG, 5 DAYS/MONTH

REACTIONS (21)
  - ANHEDONIA [None]
  - ANXIETY [None]
  - BONE DISORDER [None]
  - BONE OPERATION [None]
  - EATING DISORDER [None]
  - GENERAL PHYSICAL HEALTH DETERIORATION [None]
  - IMPAIRED HEALING [None]
  - INFLAMMATION [None]
  - INJURY [None]
  - LYMPHADENOPATHY [None]
  - ORAL PAIN [None]
  - OSTEOMYELITIS [None]
  - OSTEONECROSIS [None]
  - PAIN [None]
  - PARAESTHESIA [None]
  - PRIMARY SEQUESTRUM [None]
  - SEQUESTRECTOMY [None]
  - SWELLING [None]
  - TOOTH EXTRACTION [None]
  - WEIGHT DECREASED [None]
  - WOUND DEBRIDEMENT [None]
